FAERS Safety Report 8828308 (Version 1)
Quarter: 2012Q4

REPORT INFORMATION
  Report Type: 
  Country: BR (occurrence: BR)
  Receive Date: 20121005
  Receipt Date: 20121005
  Transmission Date: 20130627
  Serious: Yes (Hospitalization, Other)
  Sender: FDA-Public Use
  Company Number: BR-PFIZER INC-2012245201

PATIENT
  Age: 52 Year
  Sex: Female
  Weight: 99 kg

DRUGS (1)
  1. LYRICA [Suspect]
     Indication: PAIN
     Dosage: 75 mg (one capsule), 1x/day
     Route: 048
     Dates: start: 20120401

REACTIONS (3)
  - Back disorder [Unknown]
  - Arthralgia [Unknown]
  - Back pain [Unknown]
